FAERS Safety Report 5811504-9 (Version None)
Quarter: 2008Q3

REPORT INFORMATION
  Report Type: 
  Country: None (occurrence: None)
  Receive Date: 20080711
  Receipt Date: 20080711
  Transmission Date: 20090109
  Serious: No
  Sender: FDA-Public Use
  Company Number: None

PATIENT
  Age: 75 Year
  Sex: Female
  Weight: 76.2043 kg

DRUGS (3)
  1. CRESTOR [Suspect]
     Indication: HYPERCHOLESTEROLAEMIA
     Dosage: 10MG DAILY ORAL
     Route: 048
  2. LIPITOR [Suspect]
     Dosage: 10 MG DAILY ORAL
     Route: 048
  3. LESCOL [Suspect]
     Dosage: 10 MG DAILY ORAL
     Route: 048

REACTIONS (4)
  - ARTHRALGIA [None]
  - MYALGIA [None]
  - PAIN [None]
  - WEIGHT DECREASED [None]
